FAERS Safety Report 9337917 (Version 1)
Quarter: 2013Q2

REPORT INFORMATION
  Report Type: Spontaneous
  Country: US (occurrence: US)
  Receive Date: 20130608
  Receipt Date: 20130608
  Transmission Date: 20140414
  Serious: Yes (Other)
  Sender: FDA-Public Use
  Company Number: US-ASTRAZENECA-2013SE40928

PATIENT
  Age: 63 Year
  Sex: Female
  Weight: 104.8 kg

DRUGS (4)
  1. SYMBICORT [Suspect]
     Indication: WHEEZING
     Dosage: 160/4.5 MCG, UNKNOWN FREQUENCY
     Route: 055
  2. CHANTIX [Suspect]
     Indication: SMOKING CESSATION THERAPY
     Route: 065
     Dates: start: 2012
  3. RAMIPRIL [Concomitant]
     Indication: HYPERTENSION
  4. RESCUE INHALER [Concomitant]

REACTIONS (8)
  - Coronary artery occlusion [Unknown]
  - Cardiac disorder [Not Recovered/Not Resolved]
  - Pulmonary congestion [Not Recovered/Not Resolved]
  - Dry mouth [Not Recovered/Not Resolved]
  - Dyspnoea [Not Recovered/Not Resolved]
  - Wheezing [Not Recovered/Not Resolved]
  - Hypertension [Not Recovered/Not Resolved]
  - Drug ineffective [Unknown]
